FAERS Safety Report 9484243 (Version 1)
Quarter: 2013Q3

REPORT INFORMATION
  Report Type: Spontaneous
  Country: US (occurrence: US)
  Receive Date: 20130828
  Receipt Date: 20130828
  Transmission Date: 20140515
  Serious: Yes (Hospitalization, Other)
  Sender: FDA-Public Use
  Company Number: US-AMGEN-KDL394973

PATIENT
  Age: 23 Year
  Sex: Female

DRUGS (5)
  1. ENBREL [Suspect]
     Indication: PSORIATIC ARTHROPATHY
     Dosage: 50 MG, QWK
     Route: 058
     Dates: start: 2003
  2. ENBREL [Suspect]
     Indication: PSORIASIS
  3. PRENATAL VITAMINS [Concomitant]
     Dosage: UNK UNK, UNK
     Route: 048
  4. ZOLPIDEM TARTRATE [Concomitant]
     Dosage: UNK UNK, PRN
     Route: 048
  5. ACETAMINOPHEN [Concomitant]
     Dosage: UNK UNK, PRN

REACTIONS (4)
  - Pre-eclampsia [Recovered/Resolved]
  - Platelet count decreased [Unknown]
  - Psoriasis [Recovered/Resolved]
  - Psoriatic arthropathy [Recovered/Resolved]
